FAERS Safety Report 23563490 (Version 2)
Quarter: 2024Q2

REPORT INFORMATION
  Report Type: Spontaneous
  Country: IN (occurrence: None)
  Receive Date: 20240226
  Receipt Date: 20240410
  Transmission Date: 20240716
  Serious: Yes (Other)
  Sender: FDA-Public Use
  Company Number: IN-ROCHE-3490200

PATIENT
  Sex: Male
  Weight: 50 kg

DRUGS (1)
  1. POLIVY [Suspect]
     Active Substance: POLATUZUMAB VEDOTIN-PIIQ
     Indication: Non-Hodgkin^s lymphoma
     Route: 042
     Dates: start: 20240110

REACTIONS (4)
  - Off label use [Unknown]
  - Abdominal distension [Unknown]
  - Weight decreased [Unknown]
  - Pancytopenia [Unknown]
